FAERS Safety Report 5184930-1 (Version None)
Quarter: 2006Q4

REPORT INFORMATION
  Report Type: 
  Country: None (occurrence: None)
  Receive Date: 20061220
  Receipt Date: 20060510
  Transmission Date: 20070319
  Serious: No
  Sender: FDA-Public Use
  Company Number: US-GLAXOSMITHKLINE-A0605022A

PATIENT
  Sex: Female

DRUGS (2)
  1. NICODERM CQ [Suspect]
  2. COMMIT [Suspect]

REACTIONS (5)
  - BURNING SENSATION [None]
  - FEELING HOT [None]
  - NAUSEA [None]
  - OEDEMA PERIPHERAL [None]
  - PRURITUS [None]
